FAERS Safety Report 4620927-5 (Version None)
Quarter: 2005Q1

REPORT INFORMATION
  Report Type: 
  Country: None (occurrence: None)
  Receive Date: 20050325
  Receipt Date: 20050309
  Transmission Date: 20050727
  Serious: No
  Sender: FDA-Public Use
  Company Number: A02200500659

PATIENT
  Age: 50 Year
  Sex: Male

DRUGS (3)
  1. XATRAL - (ALFUZOSIN) - TABLET PR - 10 MG [Suspect]
     Indication: PROSTATIC ADENOMA
     Dosage: 10 MG OD
     Route: 048
  2. TACROLIMUS - TABLET - 20 MG [Suspect]
     Indication: LIVER TRANSPLANT
     Dosage: 20 MG BID
     Route: 048
  3. AMLOR (AMLODIPINE BESILATE) [Concomitant]

REACTIONS (4)
  - DIABETES MELLITUS NON-INSULIN-DEPENDENT [None]
  - DRUG INTERACTION [None]
  - DRUG LEVEL BELOW THERAPEUTIC [None]
  - IMMUNOSUPPRESSANT DRUG LEVEL DECREASED [None]
